FAERS Safety Report 18839455 (Version 1)
Quarter: 2021Q1

REPORT INFORMATION
  Report Type: Spontaneous
  Country: US (occurrence: US)
  Receive Date: 20210203
  Receipt Date: 20210203
  Transmission Date: 20210419
  Serious: No
  Sender: FDA-Public Use
  Company Number: US-FAGRON STERILE SERVICES-2106252

PATIENT

DRUGS (1)
  1. SUCCINYLCHOLINE 20MG/ML INJ.(API) 10ML [Suspect]
     Active Substance: SUCCINYLCHOLINE

REACTIONS (1)
  - Drug ineffective [None]
